FAERS Safety Report 7335804-9 (Version None)
Quarter: 2011Q1

REPORT INFORMATION
  Report Type: 
  Country: None (occurrence: None)
  Receive Date: 20110307
  Receipt Date: 20110221
  Transmission Date: 20110831
  Serious: Yes (Hospitalization, Other)
  Sender: FDA-Public Use
  Company Number: US-ASTELLAS-2011US000568

PATIENT
  Sex: Female
  Weight: 79 kg

DRUGS (5)
  1. PROGRAF [Suspect]
     Dosage: 5 MG, Q12 HOURS
     Route: 048
  2. PROGRAF [Suspect]
     Indication: RENAL TRANSPLANT
     Dosage: 6 MG, BID
     Route: 048
     Dates: start: 20020416
  3. PREDNISONE [Suspect]
     Indication: RENAL TRANSPLANT
     Dosage: 5 MG, UID/QD
     Route: 048
  4. MYFORTIC [Suspect]
     Indication: RENAL TRANSPLANT
     Dosage: 720 MG, UNKNOWN/D
     Route: 048
  5. PREDNISONE [Suspect]
     Dosage: 20 MG, UID/QD
     Route: 048

REACTIONS (6)
  - DIABETES MELLITUS [None]
  - TREATMENT NONCOMPLIANCE [None]
  - KIDNEY TRANSPLANT REJECTION [None]
  - CHEST PAIN [None]
  - ANAEMIA [None]
  - HYPERTENSION [None]
